FAERS Safety Report 13196741 (Version 1)
Quarter: 2017Q1

REPORT INFORMATION
  Report Type: Spontaneous
  Country: JP (occurrence: JP)
  Receive Date: 20170208
  Receipt Date: 20170208
  Transmission Date: 20170428
  Serious: Yes (Hospitalization)
  Sender: FDA-Public Use
  Company Number: JP-PFIZER INC-2017054335

PATIENT
  Age: 78 Year
  Sex: Female

DRUGS (1)
  1. LYRICA [Suspect]
     Active Substance: PREGABALIN
     Indication: POST HERPETIC NEURALGIA
     Dosage: UNK UNK, 1X/DAY
     Route: 048

REACTIONS (5)
  - Blood creatinine increased [Recovered/Resolved]
  - Dizziness [Unknown]
  - Vomiting [Unknown]
  - Renal impairment [Unknown]
  - Somnolence [Unknown]
